FAERS Safety Report 9217573 (Version 1)
Quarter: 2013Q2

REPORT INFORMATION
  Report Type: Spontaneous
  Country: US (occurrence: US)
  Receive Date: 20130408
  Receipt Date: 20130408
  Transmission Date: 20140414
  Serious: No
  Sender: FDA-Public Use
  Company Number: US-PFIZER INC-2013098889

PATIENT
  Age: 6 Decade
  Sex: Male
  Weight: 45.35 kg

DRUGS (1)
  1. EPIPEN [Suspect]
     Dosage: UNK
     Dates: start: 20130325

REACTIONS (2)
  - Injection site pain [Recovered/Resolved]
  - Injury associated with device [Recovered/Resolved]
